FAERS Safety Report 10382397 (Version 3)
Quarter: 2021Q3

REPORT INFORMATION
  Report Type: Spontaneous
  Country: US (occurrence: GB)
  Receive Date: 20140813
  Receipt Date: 20210708
  Transmission Date: 20211014
  Serious: Yes (Congenital Anomaly, Other)
  Sender: FDA-Public Use
  Company Number: GB-BIOMARINAP-GB-2014-103861

PATIENT
  Sex: Male
  Weight: 2.59 kg

DRUGS (3)
  1. ALDURAZYME [Suspect]
     Active Substance: LARONIDASE
     Indication: MUCOPOLYSACCHARIDOSIS I
     Dosage: 5500 DOSAGE FORM, QW
     Route: 064
  2. FOLIC ACID. [Concomitant]
     Active Substance: FOLIC ACID
     Indication: PRODUCT USED FOR UNKNOWN INDICATION
     Route: 064
  3. PRENATAL VITAMINS                  /01549301/ [Concomitant]
     Active Substance: VITAMINS
     Indication: VITAMIN SUPPLEMENTATION
     Route: 064

REACTIONS (2)
  - Congenital retinoblastoma [Not Recovered/Not Resolved]
  - Maternal exposure during pregnancy [Recovered/Resolved]
